FAERS Safety Report 4831010-8 (Version None)
Quarter: 2005Q4

REPORT INFORMATION
  Report Type: 
  Country: None (occurrence: None)
  Receive Date: 20051115
  Receipt Date: 20051115
  Transmission Date: 20060501
  Serious: Yes (Hospitalization)
  Sender: FDA-Public Use
  Company Number: None

PATIENT
  Age: 58 Year
  Sex: Female
  Weight: 77 kg

DRUGS (7)
  1. IBUPROFEN [Suspect]
     Dosage: 800 MG
  2. EXCEDRIN (MIGRAINE) [Suspect]
     Indication: HEADACHE
     Dosage: 2 TABS QID PO REGULARLY
     Route: 048
  3. ZANTAC [Concomitant]
  4. ADVAIR DISKUS 100/50 [Concomitant]
  5. COMBIVENT [Concomitant]
  6. HYDROXYZINE [Concomitant]
  7. GABAPENTIN [Concomitant]

REACTIONS (4)
  - DIVERTICULUM [None]
  - HAEMATOCHEZIA [None]
  - MUSCLE SPASMS [None]
  - ULCER [None]
